FAERS Safety Report 5602610-2 (Version None)
Quarter: 2008Q1

REPORT INFORMATION
  Report Type: 
  Country: None (occurrence: None)
  Receive Date: 20080125
  Receipt Date: 20080118
  Transmission Date: 20080703
  Serious: Yes (Hospitalization)
  Sender: FDA-Public Use
  Company Number: FR-AVENTIS-200810667GDDC

PATIENT
  Age: 84 Year
  Sex: Female

DRUGS (2)
  1. MINIRIN [Suspect]
     Indication: URINARY INCONTINENCE
     Route: 055
     Dates: start: 20071128, end: 20071205
  2. OLMESARTAN MEDOXOMIL [Suspect]
     Dosage: DOSE: 1 TBL
     Route: 048
     Dates: start: 20060101, end: 20071210

REACTIONS (3)
  - DRUG INTERACTION [None]
  - FALL [None]
  - HYPONATRAEMIA [None]
